FAERS Safety Report 9500131 (Version 1)
Quarter: 2013Q3

REPORT INFORMATION
  Report Type: Report from Study
  Country: BR (occurrence: BR)
  Receive Date: 20130905
  Receipt Date: 20130905
  Transmission Date: 20140515
  Serious: Yes (Death)
  Sender: FDA-Public Use
  Company Number: PHHY2013BR096974

PATIENT
  Sex: Female

DRUGS (3)
  1. DIOVAN [Suspect]
     Indication: HYPERTENSION
     Dosage: 160 MG, ONCE A DAY AT NIGHT
  2. DIOVAN [Suspect]
     Indication: HYPERTENSION
  3. ONBREZ [Suspect]
     Indication: EMPHYSEMA
     Dosage: 150 UG, QD
     Dates: start: 2012

REACTIONS (1)
  - Death [Fatal]
